FAERS Safety Report 18182211 (Version 4)
Quarter: 2020Q3

REPORT INFORMATION
  Report Type: Spontaneous
  Country: US (occurrence: US)
  Receive Date: 20200821
  Receipt Date: 20200907
  Transmission Date: 20201103
  Serious: No
  Sender: FDA-Public Use
  Company Number: NVSC2020US228462

PATIENT
  Sex: Female

DRUGS (1)
  1. TERCONAZOLE. [Suspect]
     Active Substance: TERCONAZOLE
     Indication: PRODUCT USED FOR UNKNOWN INDICATION
     Dosage: UNK UNK, QD
     Route: 067

REACTIONS (3)
  - Product design issue [Unknown]
  - Product container issue [Unknown]
  - Product packaging quantity issue [Unknown]
